FAERS Safety Report 10844348 (Version 1)
Quarter: 2015Q1

REPORT INFORMATION
  Report Type: Report from Study
  Country: DE (occurrence: DE)
  Receive Date: 20150220
  Receipt Date: 20150220
  Transmission Date: 20150721
  Serious: Yes (Death)
  Sender: FDA-Public Use
  Company Number: DE-BAXTER-2015BAX008212

PATIENT

DRUGS (8)
  1. CISPLATIN. [Suspect]
     Active Substance: CISPLATIN
     Indication: OROPHARYNGEAL SQUAMOUS CELL CARCINOMA
  2. ISOTONISCHE KOCHSALZL?SUNG BAXTER 9 MG/ML (0,9 %) INFUSIONSL?SUNG [Suspect]
     Active Substance: SODIUM CHLORIDE
     Indication: PRODUCT USED FOR UNKNOWN INDICATION
     Dosage: DAY 1 TO 5 AND DAY 29 TO 33
     Route: 042
  3. MANNITOL BAXTER 15% INFUSIONSL?SUNG [Suspect]
     Active Substance: MANNITOL
     Dosage: DAY 1 TO 5 AND DAY 29 TO 33 (AFTER IRRADIATION)
     Route: 042
  4. ONDANSETRONE HIKMA [Suspect]
     Active Substance: ONDANSETRON
     Indication: PROPHYLAXIS OF NAUSEA AND VOMITING
     Dosage: DAY 1 TO 5 AND DAY 29 TO 33
     Route: 065
  5. ISOTONISCHE KOCHSALZL?SUNG BAXTER 9 MG/ML (0,9 %) INFUSIONSL?SUNG [Suspect]
     Active Substance: SODIUM CHLORIDE
     Dosage: DAY 1 TO 5 AND DAY 29 TO 33
     Route: 042
  6. CISPLATIN. [Suspect]
     Active Substance: CISPLATIN
     Indication: SQUAMOUS CELL CARCINOMA OF THE ORAL CAVITY
     Dosage: DAY 1 TO 5 AND DAY 29 TO 33
     Route: 065
  7. MANNITOL BAXTER 15% INFUSIONSL?SUNG [Suspect]
     Active Substance: MANNITOL
     Indication: PRODUCT USED FOR UNKNOWN INDICATION
     Dosage: DAY 1 TO 5 AND DAY 29 TO 33 (BEFORE ADMINISTRATION OF CISPLATIN)
     Route: 042
  8. DEXAMETHASONE. [Suspect]
     Active Substance: DEXAMETHASONE
     Indication: PRODUCT USED FOR UNKNOWN INDICATION
     Dosage: DAY 1 TO 5 AND DAY 29 TO 33
     Route: 065

REACTIONS (1)
  - Adverse drug reaction [Fatal]
